FAERS Safety Report 5141919-6 (Version None)
Quarter: 2006Q4

REPORT INFORMATION
  Report Type: 
  Country: None (occurrence: None)
  Receive Date: 20060919
  Receipt Date: 20060523
  Transmission Date: 20070319
  Serious: No
  Sender: FDA-Public Use
  Company Number: 2006US001140

PATIENT
  Age: 84 Year
  Sex: Female

DRUGS (14)
  1. VESICARE [Suspect]
     Indication: HYPERTONIC BLADDER
     Dosage: 5 MG, UID/QD, ORAL
     Route: 048
  2. CIMETIDINE [Concomitant]
  3. PRILOSEC [Concomitant]
  4. TYLENOL EXTRA-STRENGTH [Concomitant]
  5. TRAMADOL HCL [Concomitant]
  6. POTASSIUM CHLORIDE [Concomitant]
  7. COZAAR [Concomitant]
  8. LIPITOR [Concomitant]
  9. FUROSEMIDE (FUROSEMIDE SODIUM) [Concomitant]
  10. AMITRIPTYLINE HCL [Concomitant]
  11. METOLAZONE [Concomitant]
  12. GARLIC (ALLIUM SATIVUM) [Concomitant]
  13. ASCORBIC ACID [Concomitant]
  14. VITAMIN E (HERBAL OIL NOS) [Concomitant]

REACTIONS (4)
  - BACK PAIN [None]
  - CONSTIPATION [None]
  - POLLAKIURIA [None]
  - POOR QUALITY SLEEP [None]
